FAERS Safety Report 8904070 (Version 1)
Quarter: 2012Q4

REPORT INFORMATION
  Report Type: 
  Country: US (occurrence: US)
  Receive Date: 20121112
  Receipt Date: 20121112
  Transmission Date: 20130627
  Serious: Yes (Hospitalization)
  Sender: FDA-Public Use
  Company Number: US-ELI_LILLY_AND_COMPANY-US201211001542

PATIENT
  Sex: Female

DRUGS (13)
  1. FORTEO [Suspect]
     Indication: OSTEOPOROSIS
     Dosage: 20 ug, qd
  2. FORTEO [Suspect]
     Dosage: 20 ug, qd
     Dates: start: 20121022
  3. SODIUM BICARBONATE [Concomitant]
  4. CALCITRIOL [Concomitant]
  5. VITAMIN D [Concomitant]
     Dosage: 5000 units weekly
  6. PILOCARPINE [Concomitant]
  7. OMEPRAZOLE [Concomitant]
  8. ZINC SULFATE [Concomitant]
  9. MAGNESIUM CHLORIDE [Concomitant]
  10. DIPHENOXYLATE/ATROPINE [Concomitant]
  11. VITAMIN A [Concomitant]
  12. LOPERAMIDE [Concomitant]
  13. CHOLESTYRAMINE [Concomitant]

REACTIONS (3)
  - Intestinal obstruction [Unknown]
  - Dehydration [Unknown]
  - Dehydration [Unknown]
